FAERS Safety Report 21926704 (Version 1)
Quarter: 2023Q1

REPORT INFORMATION
  Report Type: Report from Study
  Country: GB (occurrence: GB)
  Receive Date: 20230130
  Receipt Date: 20230130
  Transmission Date: 20230418
  Serious: Yes (Hospitalization, Other)
  Sender: FDA-Public Use
  Company Number: GB-TEVA-2023-GB-2850197

PATIENT
  Sex: Female

DRUGS (1)
  1. AJOVY [Suspect]
     Active Substance: FREMANEZUMAB-VFRM
     Indication: Product used for unknown indication
     Route: 065

REACTIONS (7)
  - Hospitalisation [Unknown]
  - Urosepsis [Unknown]
  - Cellulitis [Unknown]
  - Urinary tract infection [Unknown]
  - Peripheral swelling [Unknown]
  - Pain in extremity [Unknown]
  - Hypokinesia [Unknown]
